FAERS Safety Report 9315658 (Version 1)
Quarter: 2013Q2

REPORT INFORMATION
  Report Type: Spontaneous
  Country: US (occurrence: US)
  Receive Date: 20130529
  Receipt Date: 20130529
  Transmission Date: 20140414
  Serious: Yes (Other)
  Sender: FDA-Public Use
  Company Number: CHPA2013US008947

PATIENT
  Age: 74 Year
  Sex: Female

DRUGS (3)
  1. PERDIEM OVERNIGHT RELIEF PILLS [Suspect]
     Indication: CONSTIPATION
     Dosage: 2 DF, QHS
     Route: 048
     Dates: start: 1981
  2. PERDIEM OVERNIGHT RELIEF PILLS [Suspect]
     Indication: DIARRHOEA
  3. ANTIOXIDANT                        /02147801/ [Concomitant]

REACTIONS (5)
  - Hypertension [Recovering/Resolving]
  - Blood cholesterol increased [Recovering/Resolving]
  - Therapeutic response unexpected [Unknown]
  - Off label use [Unknown]
  - Incorrect drug administration duration [Unknown]
